FAERS Safety Report 11767787 (Version 1)
Quarter: 2015Q4

REPORT INFORMATION
  Report Type: Spontaneous
  Country: US (occurrence: None)
  Receive Date: 20151120
  Receipt Date: 20151120
  Transmission Date: 20160304
  Serious: Yes (Disabling)
  Sender: FDA-Public Use
  Company Number: None

PATIENT
  Age: 51 Year
  Sex: Male
  Weight: 67.13 kg

DRUGS (2)
  1. ZOLPIDEM [Suspect]
     Active Substance: ZOLPIDEM\ZOLPIDEM TARTRATE
     Indication: INSOMNIA
     Dosage: 1/2 PILL
     Route: 048
     Dates: start: 20110217, end: 20150901
  2. ALPRAZOLAM. [Concomitant]
     Active Substance: ALPRAZOLAM

REACTIONS (5)
  - Tendonitis [None]
  - Muscle atrophy [None]
  - Musculoskeletal pain [None]
  - Arthralgia [None]
  - Periarthritis [None]

NARRATIVE: CASE EVENT DATE: 20130514
